FAERS Safety Report 15260805 (Version 1)
Quarter: 2018Q3

REPORT INFORMATION
  Report Type: Spontaneous
  Country: US (occurrence: US)
  Receive Date: 20180719
  Receipt Date: 20180719
  Transmission Date: 20181010
  Serious: No
  Sender: FDA-Public Use
  Company Number: None

PATIENT
  Age: 53 Year
  Sex: Female
  Weight: 64.35 kg

DRUGS (1)
  1. VALSARTAN. [Suspect]
     Active Substance: VALSARTAN
     Indication: HYPERTENSION
     Dosage: ?          QUANTITY:1 TABLET(S);?
     Route: 048
     Dates: start: 20180616, end: 20180618

REACTIONS (7)
  - Nausea [None]
  - Nasal congestion [None]
  - Rhinorrhoea [None]
  - Headache [None]
  - Chest pain [None]
  - Cough [None]
  - Nervousness [None]

NARRATIVE: CASE EVENT DATE: 20180616
